FAERS Safety Report 5331842-6 (Version None)
Quarter: 2007Q2

REPORT INFORMATION
  Report Type: 
  Country: None (occurrence: None)
  Receive Date: 20070523
  Receipt Date: 20070511
  Transmission Date: 20071010
  Serious: Yes (Other)
  Sender: FDA-Public Use
  Company Number: PHBS2007JP02212

PATIENT
  Age: 54 Year
  Sex: Female

DRUGS (2)
  1. ZOMETA [Suspect]
     Indication: METASTASES TO BONE
     Dosage: DRIP INFUSION
     Route: 042
     Dates: start: 20061001, end: 20070201
  2. AREDIA [Suspect]
     Indication: METASTASES TO BONE
     Route: 042
     Dates: start: 20050701, end: 20060901

REACTIONS (3)
  - BONE DISORDER [None]
  - OSTEONECROSIS [None]
  - TOOTH LOSS [None]
